FAERS Safety Report 20024060 (Version 2)
Quarter: 2021Q4

REPORT INFORMATION
  Report Type: Spontaneous
  Country: IT (occurrence: IT)
  Receive Date: 20211102
  Receipt Date: 20211117
  Transmission Date: 20220303
  Serious: Yes (Life-Threatening, Other)
  Sender: FDA-Public Use
  Company Number: None

PATIENT
  Age: 36 Year
  Sex: Female
  Weight: 80 kg

DRUGS (2)
  1. PANTOPRAZOLE [Suspect]
     Active Substance: PANTOPRAZOLE
     Indication: Gastritis
     Dosage: UNK
     Route: 048
     Dates: start: 20210430, end: 20210601
  2. MONTELUKAST SODIUM [Concomitant]
     Active Substance: MONTELUKAST SODIUM
     Indication: Asthma
     Dosage: UNK
     Route: 048
     Dates: start: 20130228, end: 20200813

REACTIONS (13)
  - Rabies [Not Recovered/Not Resolved]
  - Anxiety [Recovering/Resolving]
  - Vertigo [Recovering/Resolving]
  - Nightmare [Recovering/Resolving]
  - Blood pressure decreased [Recovering/Resolving]
  - Sleep disorder [Recovering/Resolving]
  - Depression [Recovering/Resolving]
  - Diarrhoea [Recovering/Resolving]
  - Blood prolactin increased [Recovering/Resolving]
  - Vitamin D deficiency [Recovering/Resolving]
  - Anger [Recovering/Resolving]
  - Vitamin B12 deficiency [Recovering/Resolving]
  - Serum ferritin decreased [Recovering/Resolving]

NARRATIVE: CASE EVENT DATE: 20210501
